FAERS Safety Report 10050839 (Version 1)
Quarter: 2014Q2

REPORT INFORMATION
  Report Type: Spontaneous
  Country: US (occurrence: US)
  Receive Date: 20140401
  Receipt Date: 20140401
  Transmission Date: 20141212
  Serious: No
  Sender: FDA-Public Use
  Company Number: US-ASTRAZENECA-2014SE06949

PATIENT
  Age: 61 Year
  Sex: Male
  Weight: 77.1 kg

DRUGS (9)
  1. NEXIUM [Suspect]
     Indication: GASTROOESOPHAGEAL REFLUX DISEASE
     Dosage: 20 MG ONCE OR TWICE DAILY
     Route: 048
  2. NEXIUM [Suspect]
     Indication: GASTROOESOPHAGEAL REFLUX DISEASE
     Route: 048
  3. PRILOSEC [Suspect]
     Indication: GASTROOESOPHAGEAL REFLUX DISEASE
     Route: 048
  4. NIASPAN [Suspect]
     Route: 065
  5. ASPIRIN ENTERIC COATED [Concomitant]
  6. LORATADINE [Concomitant]
  7. OTHER MEDICATIONS AS NEEDED [Concomitant]
  8. ACIPHEX [Concomitant]
  9. PROTONIX [Concomitant]

REACTIONS (7)
  - Hiatus hernia [Unknown]
  - Flushing [Recovered/Resolved]
  - Urticaria [Recovered/Resolved]
  - Off label use [Unknown]
  - Wrong technique in drug usage process [Unknown]
  - Intentional product misuse [Unknown]
  - Drug ineffective [Unknown]
